FAERS Safety Report 8342996-1 (Version None)
Quarter: 2012Q2

REPORT INFORMATION
  Report Type: 
  Country: None (occurrence: None)
  Receive Date: 20120508
  Receipt Date: 20120502
  Transmission Date: 20120825
  Serious: Yes (Other)
  Sender: FDA-Public Use
  Company Number: PHHY2012HU037654

PATIENT
  Sex: Female

DRUGS (3)
  1. LETROZOLE [Suspect]
     Dosage: 2.5 MG, DAILY
     Route: 048
     Dates: start: 20080201
  2. CHEMOTHERAPEUTICS NOS [Concomitant]
     Dosage: UNK
  3. HORMONES NOS [Concomitant]
     Dosage: UNK

REACTIONS (3)
  - ERYSIPELAS [None]
  - NEOPLASM PROGRESSION [None]
  - NEOPLASM MALIGNANT [None]
